FAERS Safety Report 16515864 (Version 2)
Quarter: 2019Q3

REPORT INFORMATION
  Report Type: Report from Study
  Country: MX (occurrence: MX)
  Receive Date: 20190702
  Receipt Date: 20190715
  Transmission Date: 20191004
  Serious: Yes (Death)
  Sender: FDA-Public Use
  Company Number: MX-PFIZER INC-2019064262

PATIENT
  Age: 37 Year
  Sex: Male
  Weight: 63 kg

DRUGS (10)
  1. CRIZOTINIB [Suspect]
     Active Substance: CRIZOTINIB
     Indication: LUNG NEOPLASM MALIGNANT
     Dosage: UNK
     Route: 048
     Dates: start: 20181120, end: 20190115
  2. PRAVASTINE [Concomitant]
     Active Substance: PRAVASTATIN SODIUM
     Indication: DYSLIPIDAEMIA
     Dosage: UNK
     Route: 048
     Dates: start: 201806
  3. IBUPROFEN. [Concomitant]
     Active Substance: IBUPROFEN
     Indication: NEURALGIA
     Dosage: UNK
     Route: 048
     Dates: start: 201804
  4. CALCITRIOL. [Concomitant]
     Active Substance: CALCITRIOL
     Indication: NEPHROPATHY
     Dosage: UNK
     Route: 048
     Dates: start: 201804
  5. PIRIDOXINA [PYRIDOXINE] [Concomitant]
     Active Substance: PYRIDOXINE
     Indication: NEURALGIA
     Dosage: UNK
     Route: 048
     Dates: start: 201806
  6. CAPTOPRIL. [Concomitant]
     Active Substance: CAPTOPRIL
     Indication: HYPERTENSION
     Dosage: UNK
     Route: 048
     Dates: start: 201804
  7. ALOPURINOL [Concomitant]
     Active Substance: ALLOPURINOL
     Indication: NEPHROPATHY
     Dosage: UNK
     Route: 048
     Dates: start: 201804
  8. PREGABALINE [Concomitant]
     Active Substance: PREGABALIN
     Indication: NEURALGIA
     Dosage: UNK
     Route: 048
     Dates: start: 201806
  9. IRON [Concomitant]
     Active Substance: IRON
     Indication: NEPHROPATHY
     Dosage: UNK
     Route: 048
     Dates: start: 201804
  10. FOLIC ACID. [Concomitant]
     Active Substance: FOLIC ACID
     Indication: NEPHROPATHY
     Dosage: UNK
     Route: 048
     Dates: start: 201804

REACTIONS (2)
  - Pericardial effusion [Fatal]
  - Right ventricular failure [Fatal]

NARRATIVE: CASE EVENT DATE: 20190125
